FAERS Safety Report 17015037 (Version 1)
Quarter: 2019Q4

REPORT INFORMATION
  Report Type: Report from Study
  Country: CO (occurrence: CO)
  Receive Date: 20191111
  Receipt Date: 20191111
  Transmission Date: 20200122
  Serious: Yes (Death)
  Sender: FDA-Public Use
  Company Number: CO-ACTELION-A-CH2018-179548

PATIENT
  Age: 47 Year
  Sex: Female
  Weight: 70 kg

DRUGS (1)
  1. OPSUMIT [Suspect]
     Active Substance: MACITENTAN
     Indication: PULMONARY ARTERIAL HYPERTENSION
     Dosage: 10 MG, QD
     Route: 048
     Dates: start: 20180210, end: 2018

REACTIONS (8)
  - Back pain [Not Recovered/Not Resolved]
  - Aphonia [Not Recovered/Not Resolved]
  - Agitation [Not Recovered/Not Resolved]
  - Cyanosis [Fatal]
  - Influenza [Not Recovered/Not Resolved]
  - Myocardial infarction [Fatal]
  - Protrusion tongue [Fatal]
  - Fatigue [Not Recovered/Not Resolved]

NARRATIVE: CASE EVENT DATE: 20180917
